FAERS Safety Report 20172510 (Version 5)
Quarter: 2022Q3

REPORT INFORMATION
  Report Type: Report from Study
  Country: US (occurrence: US)
  Receive Date: 20211210
  Receipt Date: 20220926
  Transmission Date: 20221027
  Serious: Yes (Other)
  Sender: FDA-Public Use
  Company Number: US-NOVARTISPH-NVSC2021US114619

PATIENT
  Sex: Female

DRUGS (1)
  1. ENTRESTO [Suspect]
     Active Substance: SACUBITRIL\VALSARTAN
     Indication: Product used for unknown indication
     Dosage: 49.51 MG, QD, (48.6 MG SACUBITRIL AND 51.4 MG VALSARTAN)
     Route: 048

REACTIONS (4)
  - Atrial fibrillation [Unknown]
  - Fall [Unknown]
  - COVID-19 [Unknown]
  - Incorrect dose administered [Not Recovered/Not Resolved]
